FAERS Safety Report 13995409 (Version 1)
Quarter: 2017Q3

REPORT INFORMATION
  Report Type: Spontaneous
  Country: AT (occurrence: AT)
  Receive Date: 20170921
  Receipt Date: 20170921
  Transmission Date: 20171128
  Serious: Yes (Other)
  Sender: FDA-Public Use
  Company Number: AT-ROCHE-1991192

PATIENT
  Sex: Female

DRUGS (1)
  1. KADCYLA [Suspect]
     Active Substance: ADO-TRASTUZUMAB EMTANSINE
     Indication: BREAST CANCER METASTATIC
     Dosage: KADCYLA MONO, FOR MORE THAN 2 YEARS, 3RD LINE
     Route: 065

REACTIONS (4)
  - Dementia [Unknown]
  - Language disorder [Unknown]
  - Cognitive disorder [Unknown]
  - Progressive multifocal leukoencephalopathy [Unknown]
